FAERS Safety Report 21700023 (Version 1)
Quarter: 2022Q4

REPORT INFORMATION
  Report Type: Spontaneous
  Country: US (occurrence: None)
  Receive Date: 20221207
  Receipt Date: 20221207
  Transmission Date: 20230113
  Serious: Yes (Hospitalization)
  Sender: FDA-Public Use
  Company Number: None

PATIENT
  Age: 73 Year
  Sex: Male
  Weight: 108 kg

DRUGS (1)
  1. LOSARTAN [Suspect]
     Active Substance: LOSARTAN
     Indication: Hypertension
     Dosage: 25 MG EVERY DAY PO?
     Route: 048
     Dates: start: 20221005, end: 20221019

REACTIONS (3)
  - Hypotension [None]
  - Blood urea increased [None]
  - Acute kidney injury [None]

NARRATIVE: CASE EVENT DATE: 20221019
